FAERS Safety Report 8063566-9 (Version None)
Quarter: 2011Q4

REPORT INFORMATION
  Report Type: 
  Country: None (occurrence: None)
  Receive Date: 20111220
  Receipt Date: 20110105
  Transmission Date: 20120403
  Serious: Yes (Other)
  Sender: FDA-Public Use
  Company Number: 2011000067

PATIENT

DRUGS (4)
  1. OXYCONTIN [Concomitant]
  2. DURAGESIC-100 [Concomitant]
  3. DILAUDID [Concomitant]
  4. ACTIQ [Suspect]
     Indication: CANCER PAIN
     Dosage: (800 MCG), BU
     Route: 002

REACTIONS (1)
  - TOOTH LOSS [None]
